FAERS Safety Report 23057352 (Version 1)
Quarter: 2023Q4

REPORT INFORMATION
  Report Type: Spontaneous
  Country: US (occurrence: US)
  Receive Date: 20231012
  Receipt Date: 20231012
  Transmission Date: 20240110
  Serious: Yes (Other)
  Sender: FDA-Public Use
  Company Number: US-ALIMERA SCIENCES INC.-US-A16013-23-000270

PATIENT
  Sex: Male

DRUGS (1)
  1. ILUVIEN [Suspect]
     Active Substance: FLUOCINOLONE ACETONIDE
     Indication: Uveitis
     Dosage: 0.25 MICROGRAM, QD, -RIGHT EYE
     Route: 031

REACTIONS (4)
  - Retinal injury [Unknown]
  - Blindness [Unknown]
  - Retinal detachment [Unknown]
  - Eye complication associated with device [Unknown]
